FAERS Safety Report 5165284-3 (Version None)
Quarter: 2006Q4

REPORT INFORMATION
  Report Type: 
  Country: None (occurrence: None)
  Receive Date: 20061124
  Receipt Date: 20061116
  Transmission Date: 20070319
  Serious: Yes (Disabling)
  Sender: FDA-Public Use
  Company Number: 2006142200

PATIENT
  Age: 44 Year
  Sex: Male
  Weight: 91 kg

DRUGS (4)
  1. PREDNISOLONE [Suspect]
     Indication: RHEUMATOID ARTHRITIS
     Dosage: 5 MG (5 MG, 1 IN 1 D), ORAL
     Route: 048
     Dates: start: 20040701
  2. LANTAREL (METHOTREXATE SODIUM) [Suspect]
     Indication: RHEUMATOID ARTHRITIS
     Dosage: 15 MG, 1 IN 1 WK
     Dates: start: 20040701
  3. ENBREL [Suspect]
     Indication: RHEUMATOID ARTHRITIS
     Dosage: 25 MG, 2 IN 1 WK, SUBCUTANEOUS
     Route: 058
     Dates: start: 20050301
  4. OXYCODONE HCL [Concomitant]

REACTIONS (3)
  - GINGIVAL ATROPHY [None]
  - PERIODONTITIS [None]
  - TOOTH LOSS [None]
